FAERS Safety Report 6413319-X (Version None)
Quarter: 2009Q4

REPORT INFORMATION
  Report Type: 
  Country: None (occurrence: None)
  Receive Date: 20091026
  Receipt Date: 20091012
  Transmission Date: 20100525
  Serious: Yes (Other)
  Sender: FDA-Public Use
  Company Number: GB-ROCHE-662709

PATIENT
  Age: 38 Year
  Sex: Female

DRUGS (2)
  1. TAMIFLU [Suspect]
     Route: 065
     Dates: start: 20090926, end: 20091001
  2. CITALOPRAM HYDROBROMIDE [Concomitant]

REACTIONS (2)
  - DEPRESSION [None]
  - DEPRESSION SUICIDAL [None]
